FAERS Safety Report 7302188-1 (Version None)
Quarter: 2011Q1

REPORT INFORMATION
  Report Type: 
  Country: None (occurrence: None)
  Receive Date: 20110218
  Receipt Date: 20110214
  Transmission Date: 20110831
  Serious: Yes (Other)
  Sender: FDA-Public Use
  Company Number: DE-SANOFI-AVENTIS-2011SA009583

PATIENT
  Sex: Male

DRUGS (1)
  1. ISCOVER [Suspect]
     Route: 065
     Dates: start: 20080101

REACTIONS (1)
  - GASTRIC ULCER [None]
